FAERS Safety Report 25960921 (Version 1)
Quarter: 2025Q4

REPORT INFORMATION
  Report Type: Spontaneous
  Country: US (occurrence: US)
  Receive Date: 20251027
  Receipt Date: 20251027
  Transmission Date: 20260118
  Serious: No
  Sender: Haleon PLC
  Company Number: US-HALEON-2269330

PATIENT

DRUGS (1)
  1. GAS-X ULTIMATE STRENGTH SOFTGELS [Suspect]
     Active Substance: DIMETHICONE
     Indication: Flatulence

REACTIONS (1)
  - Drug effect less than expected [Unknown]
